FAERS Safety Report 20601993 (Version 2)
Quarter: 2022Q2

REPORT INFORMATION
  Report Type: Spontaneous
  Country: US (occurrence: US)
  Receive Date: 20220316
  Receipt Date: 20220616
  Transmission Date: 20220721
  Serious: No
  Sender: FDA-Public Use
  Company Number: US-SK LIFE SCIENCE, INC-SKPVG-2022-000085

PATIENT

DRUGS (1)
  1. XCOPRI [Suspect]
     Active Substance: CENOBAMATE
     Indication: Seizure
     Dosage: 25 MILLIGRAM, QD, (EVERY MORNING AT 9 AM)
     Route: 065
     Dates: start: 20220202

REACTIONS (1)
  - Focal dyscognitive seizures [Unknown]

NARRATIVE: CASE EVENT DATE: 20220218
